FAERS Safety Report 7406125-0 (Version None)
Quarter: 2011Q2

REPORT INFORMATION
  Report Type: 
  Country: None (occurrence: None)
  Receive Date: 20110411
  Receipt Date: 20110407
  Transmission Date: 20111010
  Serious: Yes (Other)
  Sender: FDA-Public Use
  Company Number: US-PFIZER INC-2011073402

PATIENT
  Sex: Female
  Weight: 64.853 kg

DRUGS (5)
  1. CHANTIX [Suspect]
     Indication: SMOKING CESSATION THERAPY
     Dosage: 0.5 MG, 1X/DAY
     Route: 048
     Dates: start: 20110312, end: 20110301
  2. PROTONIX [Concomitant]
     Indication: GASTROOESOPHAGEAL REFLUX DISEASE
     Dosage: 40 MG, 1X/DAY
     Route: 048
  3. LEVOTHYROXINE [Concomitant]
     Indication: THYROID DISORDER
     Dosage: 150 UG, 1X/DAY
  4. CHANTIX [Suspect]
     Dosage: 1 MG, 2X/DAY
     Dates: start: 20110301, end: 20110326
  5. PHENTERMINE [Concomitant]
     Indication: WEIGHT CONTROL
     Dosage: 37.5 MG, 1X/DAY

REACTIONS (5)
  - SWELLING FACE [None]
  - SKIN EXFOLIATION [None]
  - BURNING SENSATION [None]
  - ERYTHEMA [None]
  - RASH [None]
